FAERS Safety Report 9473198 (Version 1)
Quarter: 2013Q3

REPORT INFORMATION
  Report Type: Spontaneous
  Country: US (occurrence: US)
  Receive Date: 20130823
  Receipt Date: 20130823
  Transmission Date: 20140515
  Serious: Yes (Other)
  Sender: FDA-Public Use
  Company Number: US-BRISTOL-MYERS SQUIBB COMPANY-18754390

PATIENT
  Age: 44 Year
  Sex: Male
  Weight: 94.78 kg

DRUGS (3)
  1. SPRYCEL [Suspect]
     Route: 048
  2. ZOFRAN [Concomitant]
  3. SYNTHROID [Concomitant]

REACTIONS (3)
  - Electrocardiogram QT prolonged [Unknown]
  - Gastrointestinal disorder [Unknown]
  - Red blood cell count decreased [Unknown]
